FAERS Safety Report 10330889 (Version 1)
Quarter: 2014Q3

REPORT INFORMATION
  Report Type: Spontaneous
  Country: US (occurrence: US)
  Receive Date: 20140722
  Receipt Date: 20140722
  Transmission Date: 20150326
  Serious: No
  Sender: FDA-Public Use
  Company Number: US-MYLANLABS-2014S1009001

PATIENT
  Age: 73 Year
  Sex: Male

DRUGS (4)
  1. TRAVATAN Z [Concomitant]
     Active Substance: TRAVOPROST
  2. ALFUZOSIN HYDROCHLORIDE ER [Suspect]
     Active Substance: ALFUZOSIN HYDROCHLORIDE
     Indication: PROSTATE INFECTION
     Route: 048
     Dates: start: 2012
  3. COMBIGAN D [Concomitant]
  4. LIPITOR [Concomitant]
     Active Substance: ATORVASTATIN CALCIUM

REACTIONS (3)
  - Dysuria [Not Recovered/Not Resolved]
  - Drug ineffective [Not Recovered/Not Resolved]
  - Prostatic disorder [Not Recovered/Not Resolved]

NARRATIVE: CASE EVENT DATE: 20140411
